FAERS Safety Report 13193385 (Version 6)
Quarter: 2018Q3

REPORT INFORMATION
  Report Type: Spontaneous
  Country: JP (occurrence: JP)
  Receive Date: 20170207
  Receipt Date: 20180830
  Transmission Date: 20181010
  Serious: Yes (Death, Hospitalization, Other)
  Sender: FDA-Public Use
  Company Number: JP-BRISTOL-MYERS SQUIBB COMPANY-BMS-2017-009981

PATIENT
  Age: 66 Year
  Sex: Male

DRUGS (1)
  1. NIVOLUMAB [Suspect]
     Active Substance: NIVOLUMAB
     Indication: NON-SMALL CELL LUNG CANCER RECURRENT
     Dosage: 3 MG/KG, Q2WK
     Route: 041
     Dates: start: 20170112, end: 20170112

REACTIONS (5)
  - Hot flush [Unknown]
  - Bronchial fistula [Not Recovered/Not Resolved]
  - Bronchiectasis [Unknown]
  - Malignant neoplasm progression [Fatal]
  - Oesophageal fistula [Unknown]

NARRATIVE: CASE EVENT DATE: 2017
